FAERS Safety Report 8145211-7 (Version None)
Quarter: 2012Q1

REPORT INFORMATION
  Report Type: 
  Country: None (occurrence: None)
  Receive Date: 20120217
  Receipt Date: 20120210
  Transmission Date: 20120608
  Serious: Yes (Other)
  Sender: FDA-Public Use
  Company Number: US-PURDUE-USA-2011-0074104

PATIENT
  Sex: Male

DRUGS (21)
  1. AVINZA [Suspect]
     Indication: PRODUCT USED FOR UNKNOWN INDICATION
     Dosage: 100 MG, BID
  2. ANDROSTENEDIONE [Concomitant]
     Indication: PRODUCT USED FOR UNKNOWN INDICATION
  3. VIOXX [Concomitant]
     Indication: PRODUCT USED FOR UNKNOWN INDICATION
     Dosage: 50 MG, DAILY
  4. ACIPHEX [Concomitant]
     Indication: PRODUCT USED FOR UNKNOWN INDICATION
     Dosage: 20 MG, DAILY
  5. RELAFEN [Concomitant]
     Indication: PAIN
  6. ADDERALL 5 [Suspect]
     Indication: DRUG ABUSE
  7. EPHEDRINE [Suspect]
     Indication: DRUG ABUSE
  8. SEROQUEL [Suspect]
     Indication: INSOMNIA
     Dosage: UNK, HS
  9. CLENBUTEROL [Concomitant]
     Indication: PRODUCT USED FOR UNKNOWN INDICATION
  10. YOHIMBINE [Concomitant]
     Indication: PRODUCT USED FOR UNKNOWN INDICATION
     Dosage: UNK, PRN
  11. OXYCODONE HCL [Suspect]
     Indication: PRODUCT USED FOR UNKNOWN INDICATION
     Dosage: UNK
     Dates: start: 19991001, end: 20101122
  12. ALBUTEROL [Suspect]
     Indication: DRUG ABUSE
  13. ROXICODONE [Suspect]
     Indication: PRODUCT USED FOR UNKNOWN INDICATION
     Dosage: UNK
     Dates: start: 19991001, end: 20101122
  14. PERCOCET [Suspect]
     Indication: PAIN
     Dosage: 1 TABLET, Q4H PRN
  15. OXYCONTIN [Suspect]
     Indication: PAIN
     Dosage: UNK UNK, SEE TEXT
     Dates: start: 19991001, end: 20101122
  16. IBUPROFEN (ADVIL) [Concomitant]
     Indication: PRODUCT USED FOR UNKNOWN INDICATION
  17. ETHANOL [Suspect]
     Indication: PRODUCT USED FOR UNKNOWN INDICATION
  18. PERCOCET [Suspect]
     Dosage: 1 TABLET, Q8H PRN
  19. FLEXERIL [Concomitant]
     Indication: PRODUCT USED FOR UNKNOWN INDICATION
     Dosage: 20 MG, DAILY
  20. WELLBUTRIN [Concomitant]
     Indication: PRODUCT USED FOR UNKNOWN INDICATION
     Dosage: 150 MG, DAILY
  21. NAPROSYN [Concomitant]
     Indication: PRODUCT USED FOR UNKNOWN INDICATION
     Dosage: 500 MG, BID

REACTIONS (33)
  - IMPAIRED DRIVING ABILITY [None]
  - MENTAL DISORDER [None]
  - INSOMNIA [None]
  - ANGER [None]
  - FEELING OF DESPAIR [None]
  - SUBSTANCE ABUSE [None]
  - MEMORY IMPAIRMENT [None]
  - EMOTIONAL DISORDER [None]
  - MUSCLE ATROPHY [None]
  - SUICIDAL IDEATION [None]
  - DIZZINESS [None]
  - MENTAL IMPAIRMENT [None]
  - THINKING ABNORMAL [None]
  - MULTIPLE DRUG OVERDOSE [None]
  - PAIN [None]
  - GENERAL PHYSICAL HEALTH DETERIORATION [None]
  - COGNITIVE DISORDER [None]
  - NIGHTMARE [None]
  - HOSTILITY [None]
  - VOMITING [None]
  - CONFUSIONAL STATE [None]
  - DRUG WITHDRAWAL SYNDROME [None]
  - HYPERHIDROSIS [None]
  - DRUG DEPENDENCE [None]
  - BRAIN INJURY [None]
  - ANXIETY [None]
  - MENTAL STATUS CHANGES [None]
  - MUSCULAR WEAKNESS [None]
  - PANIC DISORDER [None]
  - SHOCK [None]
  - INJURY [None]
  - IMPAIRED REASONING [None]
  - EMOTIONAL DISTRESS [None]
